FAERS Safety Report 7208239-7 (Version None)
Quarter: 2011Q1

REPORT INFORMATION
  Report Type: 
  Country: None (occurrence: None)
  Receive Date: 20110104
  Receipt Date: 20101231
  Transmission Date: 20110831
  Serious: Yes (Death, Hospitalization)
  Sender: FDA-Public Use
  Company Number: US-BRISTOL-MYERS SQUIBB COMPANY-15464142

PATIENT
  Age: 50 Year
  Sex: Male

DRUGS (1)
  1. WARFARIN SODIUM [Suspect]
     Indication: ATRIAL FIBRILLATION
     Dosage: FROM JAN07-2.5MG/DAY.WITHDRAWN ON AUGUST.
     Dates: end: 20070801

REACTIONS (2)
  - LARGE INTESTINAL HAEMORRHAGE [None]
  - VASCULAR CALCIFICATION [None]
